FAERS Safety Report 23909958 (Version 1)
Quarter: 2024Q2

REPORT INFORMATION
  Report Type: Spontaneous
  Country: US (occurrence: US)
  Receive Date: 20240528
  Receipt Date: 20240528
  Transmission Date: 20240715
  Serious: No
  Sender: FDA-Public Use
  Company Number: US-IMP-2024000165

PATIENT
  Sex: Female

DRUGS (1)
  1. POLYVINYL ALCOHOL\POVIDONE [Suspect]
     Active Substance: POLYVINYL ALCOHOL\POVIDONE
     Indication: Product used for unknown indication
     Route: 047

REACTIONS (1)
  - Circumstance or information capable of leading to medication error [Unknown]
